FAERS Safety Report 6223215-9 (Version None)
Quarter: 2009Q2

REPORT INFORMATION
  Report Type: 
  Country: None (occurrence: None)
  Receive Date: 20090611
  Receipt Date: 20090602
  Transmission Date: 20091009
  Serious: Yes (Hospitalization, Other)
  Sender: FDA-Public Use
  Company Number: ES-AVENTIS-200913059EU

PATIENT
  Age: 56 Year
  Sex: Male

DRUGS (4)
  1. SEGURIL                            /00032601/ [Suspect]
     Dosage: DOSE: 600 MG 1.5 WEEKLY
     Route: 048
     Dates: start: 20080222, end: 20080307
  2. ALDACTONE [Suspect]
     Route: 048
     Dates: start: 20080222, end: 20080307
  3. RISPERDAL [Suspect]
     Route: 048
     Dates: start: 20080101, end: 20080307
  4. CIPRALEX [Concomitant]
     Route: 048
     Dates: end: 20080307

REACTIONS (2)
  - DRUG INTERACTION [None]
  - HEPATIC ENCEPHALOPATHY [None]
